FAERS Safety Report 9649453 (Version 1)
Quarter: 2013Q4

REPORT INFORMATION
  Report Type: Spontaneous
  Country: US (occurrence: US)
  Receive Date: 20131028
  Receipt Date: 20131028
  Transmission Date: 20140711
  Serious: Yes (Hospitalization)
  Sender: FDA-Public Use
  Company Number: US-B.I. PHARMACEUTICALS,INC./RIDGEFIELD-2013-BI-33274BP

PATIENT
  Age: 66 Year
  Sex: Male

DRUGS (11)
  1. SPIRIVA [Suspect]
     Indication: CHRONIC OBSTRUCTIVE PULMONARY DISEASE
     Dosage: 18 MCG
     Route: 055
     Dates: start: 2007
  2. ISOSORBIDE [Concomitant]
     Dosage: 50 MG
     Route: 048
  3. TESSALON PERLES [Concomitant]
     Dosage: 300 MG
     Route: 048
  4. VITAMIN D [Concomitant]
     Route: 048
  5. TIZANIDINE [Concomitant]
     Route: 048
  6. REQUIP [Concomitant]
     Indication: RESTLESS LEGS SYNDROME
     Dosage: 4 MG
     Route: 048
  7. SYMBICORT [Concomitant]
     Route: 055
  8. LASIX [Concomitant]
     Dosage: 20 MG
     Route: 048
  9. ASPIRIN [Concomitant]
     Dosage: 325 MG
     Route: 048
  10. XOPENEX [Concomitant]
     Dosage: PRN
     Route: 055
  11. DALIRESP [Concomitant]
     Route: 048

REACTIONS (7)
  - Chronic obstructive pulmonary disease [Recovered/Resolved]
  - Arthritis infective [Recovered/Resolved]
  - Haemarthrosis [Recovered/Resolved]
  - Pneumonia [Recovered/Resolved]
  - PCO2 increased [Recovered/Resolved]
  - Contusion [Recovered/Resolved]
  - Oedema peripheral [Recovered/Resolved]
